FAERS Safety Report 25374167 (Version 1)
Quarter: 2025Q2

REPORT INFORMATION
  Report Type: Spontaneous
  Country: US (occurrence: None)
  Receive Date: 20250528
  Receipt Date: 20250528
  Transmission Date: 20250717
  Serious: Yes (Life-Threatening, Other)
  Sender: FDA-CTU
  Company Number: None

PATIENT
  Age: 64 Year
  Sex: Female
  Weight: 60.75 kg

DRUGS (1)
  1. GIVLAARI [Suspect]
     Active Substance: GIVOSIRAN SODIUM
     Indication: Porphyria acute
     Route: 058
     Dates: start: 20241023, end: 20241228

REACTIONS (9)
  - Illness [None]
  - Dementia [None]
  - Vomiting [None]
  - Hallucination [None]
  - Amnesia [None]
  - Dyskinesia [None]
  - Bedridden [None]
  - Decreased interest [None]
  - Personal relationship issue [None]

NARRATIVE: CASE EVENT DATE: 20241228
